FAERS Safety Report 6642858-1 (Version None)
Quarter: 2010Q1

REPORT INFORMATION
  Report Type: 
  Country: None (occurrence: None)
  Receive Date: 20100319
  Receipt Date: 20100312
  Transmission Date: 20100710
  Serious: Yes (Life-Threatening, Hospitalization)
  Sender: FDA-Public Use
  Company Number: GB-BAUSCH-2010BL001395

PATIENT
  Age: 65 Year
  Sex: Male

DRUGS (3)
  1. DEXAMETHASONE [Suspect]
     Indication: MULTIPLE MYELOMA
  2. BORTEZOMIB [Suspect]
     Indication: MULTIPLE MYELOMA
  3. FLOXACILLIN SODIUM [Concomitant]
     Indication: SPLINTER

REACTIONS (3)
  - HEPATITIS [None]
  - NECROTISING FASCIITIS [None]
  - SALMONELLOSIS [None]
